FAERS Safety Report 24982592 (Version 1)
Quarter: 2025Q1

REPORT INFORMATION
  Report Type: Spontaneous
  Country: BG (occurrence: BG)
  Receive Date: 20250218
  Receipt Date: 20250218
  Transmission Date: 20250408
  Serious: Yes (Life-Threatening, Other)
  Sender: IMMUNOCORE
  Company Number: BG-Medison-000990

PATIENT

DRUGS (1)
  1. KIMMTRAK [Suspect]
     Active Substance: TEBENTAFUSP-TEBN
     Indication: Metastatic ocular melanoma
     Route: 042
     Dates: start: 202406, end: 20250121

REACTIONS (3)
  - Metastasis [Not Recovered/Not Resolved]
  - Cardiovascular disorder [Unknown]
  - Product dose omission issue [Unknown]

NARRATIVE: CASE EVENT DATE: 20250128
